FAERS Safety Report 23172564 (Version 1)
Quarter: 2023Q4

REPORT INFORMATION
  Report Type: Report from Study
  Country: US (occurrence: US)
  Receive Date: 20231110
  Receipt Date: 20231110
  Transmission Date: 20240109
  Serious: Yes (Other)
  Sender: FDA-Public Use
  Company Number: US-REGENERON PHARMACEUTICALS, INC.-2023-038997

PATIENT
  Sex: Female

DRUGS (1)
  1. CEMIPLIMAB [Suspect]
     Active Substance: CEMIPLIMAB
     Indication: Squamous cell carcinoma of skin
     Dosage: 350 MG, Q3W
     Route: 042
     Dates: start: 202112

REACTIONS (12)
  - Thyroiditis acute [Unknown]
  - Hypothyroidism [Unknown]
  - Basal cell carcinoma [Unknown]
  - Illness [Unknown]
  - Fatigue [Recovering/Resolving]
  - Nausea [Unknown]
  - Weight decreased [Recovering/Resolving]
  - Decreased appetite [Unknown]
  - Asthenia [Unknown]
  - COVID-19 [Unknown]
  - Vasodilatation [Recovered/Resolved]
  - Skin lesion [Unknown]

NARRATIVE: CASE EVENT DATE: 20220101
